FAERS Safety Report 5220546-6 (Version None)
Quarter: 2007Q1

REPORT INFORMATION
  Report Type: 
  Country: None (occurrence: None)
  Receive Date: 20070126
  Receipt Date: 20070117
  Transmission Date: 20070707
  Serious: Yes (Disabling)
  Sender: FDA-Public Use
  Company Number: PHBS2007FI01218

PATIENT
  Age: 40 Year
  Sex: Male

DRUGS (3)
  1. VOLTAREN [Suspect]
     Indication: BACK PAIN
     Dosage: 75 MG/DAY
     Route: 030
     Dates: start: 20061126
  2. NORFLEX [Suspect]
     Indication: BACK PAIN
     Route: 030
     Dates: start: 20061126
  3. BURANA [Concomitant]
     Indication: BACK PAIN
     Dosage: 400 MG/DAY
     Route: 048

REACTIONS (4)
  - INJECTION SITE ANAESTHESIA [None]
  - INJECTION SITE DISCOMFORT [None]
  - INJECTION SITE MASS [None]
  - INJECTION SITE PAIN [None]
